FAERS Safety Report 8435766 (Version 2)
Quarter: 2013Q1

REPORT INFORMATION
  Report Type: Report from Study
  Country: DE (occurrence: DE)
  Receive Date: 20120301
  Receipt Date: 20130218
  Transmission Date: 20140127
  Serious: Yes (Hospitalization)
  Sender: FDA-Public Use
  Company Number: PHHO2012DE003137

PATIENT
  Age: 92 Year
  Sex: Female

DRUGS (6)
  1. CGS 20267 [Suspect]
     Indication: BREAST CANCER
     Dosage: 2.5 MG, QD
     Route: 048
     Dates: start: 200612
  2. ASS [Concomitant]
     Indication: PROPHYLAXIS
     Dosage: 100 MG, QD
  3. ESIDRIX [Concomitant]
     Indication: HYPERTENSION
     Dosage: 25 MG, QD
  4. LISINOPRIL [Concomitant]
     Indication: HYPERTENSION
     Dosage: 10 MG, QD
  5. METFORMIN [Concomitant]
     Indication: DIABETES MELLITUS
     Dosage: 850 MG, QD
  6. SIMVAHEXAL [Concomitant]
     Indication: HYPERCHOLESTEROLAEMIA
     Dosage: 10 MG, QD

REACTIONS (1)
  - Aortic aneurysm [Recovered/Resolved with Sequelae]
